FAERS Safety Report 17979394 (Version 1)
Quarter: 2020Q3

REPORT INFORMATION
  Report Type: Spontaneous
  Country: GB (occurrence: GB)
  Receive Date: 20200703
  Receipt Date: 20200703
  Transmission Date: 20201103
  Serious: Yes (Life-Threatening, Other)
  Sender: FDA-Public Use
  Company Number: NVSC2020GB185836

PATIENT
  Age: 18 Year
  Sex: Female
  Weight: 57 kg

DRUGS (6)
  1. ZINERYT [Concomitant]
     Indication: ACNE
     Dosage: UNK (TO BE APPLIED ONCE OR TWICE)
     Route: 065
     Dates: start: 20200318
  2. SUMATRIPTAN. [Suspect]
     Active Substance: SUMATRIPTAN
     Indication: MIGRAINE
     Dosage: 50 MG (ONE AS SOON AS POSSIBLE AS ONSET DOSE CAN BE REPETED AFTER 2 HR)
     Route: 048
     Dates: start: 20200512
  3. ADAPALENE. [Concomitant]
     Active Substance: ADAPALENE
     Indication: ACNE
     Dosage: UNK (APPLY AT NIGHT)
     Route: 065
     Dates: start: 20200318
  4. LUCETTE [Concomitant]
     Active Substance: DROSPIRENONE\ETHINYL ESTRADIOL
     Indication: PRODUCT USED FOR UNKNOWN INDICATION
     Dosage: 1 DF, QD (21 DAYS FOLLOWED BY 7 TABLET FREE DAYS0.03MG/3MG)
     Route: 065
     Dates: start: 20200423
  5. IBUPROFEN. [Concomitant]
     Active Substance: IBUPROFEN
     Indication: PRODUCT USED FOR UNKNOWN INDICATION
     Dosage: 200 MG (3 EVERY DAY FOR ACUTE ATTACK MAX 6 PER DAY)
     Route: 065
     Dates: start: 20200512
  6. CETRABEN EMOLLIENT [Concomitant]
     Indication: PRODUCT USED FOR UNKNOWN INDICATION
     Dosage: UP TO 3 TIMES A DAY AS NECESSARY
     Route: 065
     Dates: start: 20200221

REACTIONS (1)
  - Swelling [Recovered/Resolved]

NARRATIVE: CASE EVENT DATE: 20200514
